FAERS Safety Report 5760280-7 (Version None)
Quarter: 2008Q2

REPORT INFORMATION
  Report Type: 
  Country: None (occurrence: None)
  Receive Date: 20080605
  Receipt Date: 20080526
  Transmission Date: 20081010
  Serious: Yes (Death, Life-Threatening)
  Sender: FDA-Public Use
  Company Number: DE-PFIZER INC-2008045165

PATIENT
  Sex: Male

DRUGS (4)
  1. COMBACTAM [Suspect]
     Indication: PYREXIA
     Dosage: DAILY DOSE:1.5GRAM
     Route: 042
     Dates: start: 20080509, end: 20080514
  2. COMBACTAM [Suspect]
     Indication: LEUKOCYTOSIS
  3. PIPERACILLIN [Suspect]
     Indication: PYREXIA
     Dosage: DAILY DOSE:12GRAM
     Route: 042
     Dates: start: 20080509, end: 20080514
  4. PIPERACILLIN [Suspect]
     Indication: LEUKOCYTOSIS

REACTIONS (2)
  - RENAL FAILURE ACUTE [None]
  - SEPSIS [None]
